FAERS Safety Report 9466754 (Version 1)
Quarter: 2013Q3

REPORT INFORMATION
  Report Type: Spontaneous
  Country: GB (occurrence: GB)
  Receive Date: 20130820
  Receipt Date: 20130820
  Transmission Date: 20140515
  Serious: Yes (Other)
  Sender: FDA-Public Use
  Company Number: GB-BAYER-2013-097492

PATIENT
  Age: 83 Year
  Sex: Male

DRUGS (6)
  1. ACETYLSALICYLIC ACID({=100 MG) [Suspect]
     Indication: CARDIOVASCULAR EVENT PROPHYLAXIS
  2. PROPRANOLOL [Concomitant]
  3. NIFEDIPINE [Concomitant]
  4. DIPYRIDAMOLE [Concomitant]
  5. SIMVASTATIN [Concomitant]
  6. CO-CODAMOL [Concomitant]

REACTIONS (3)
  - Upper gastrointestinal haemorrhage [None]
  - Circulatory collapse [None]
  - Haemoglobin decreased [None]
